FAERS Safety Report 24304169 (Version 2)
Quarter: 2024Q4

REPORT INFORMATION
  Report Type: Report from Study
  Country: FR (occurrence: FR)
  Receive Date: 20240910
  Receipt Date: 20241127
  Transmission Date: 20250115
  Serious: Yes (Hospitalization)
  Sender: DAIICHI
  Company Number: None

PATIENT
  Age: 77 Year
  Sex: Female
  Weight: 39.1 kg

DRUGS (2)
  1. ENHERTU [Suspect]
     Active Substance: FAM-TRASTUZUMAB DERUXTECAN-NXKI
     Indication: Breast cancer metastatic
     Dosage: 5.40 MG/KG, CYCLIC (PER CURE)
     Route: 042
     Dates: start: 20230808, end: 202403
  2. ENHERTU [Suspect]
     Active Substance: FAM-TRASTUZUMAB DERUXTECAN-NXKI
     Dosage: UNK UNK, CYCLIC (PER CURE)
     Route: 042
     Dates: start: 20240716, end: 20240917

REACTIONS (3)
  - Starvation [Recovering/Resolving]
  - Subileus [Recovering/Resolving]
  - Metastases to peritoneum [Not Recovered/Not Resolved]

NARRATIVE: CASE EVENT DATE: 20240819
